FAERS Safety Report 6460608-9 (Version None)
Quarter: 2009Q4

REPORT INFORMATION
  Report Type: 
  Country: None (occurrence: None)
  Receive Date: 20091130
  Receipt Date: 20091119
  Transmission Date: 20100525
  Serious: Yes (Other)
  Sender: FDA-Public Use
  Company Number: US-ASTRAZENECA-2009SE27625

PATIENT
  Age: 63 Year
  Sex: Female
  Weight: 64.9 kg

DRUGS (1)
  1. SYMBICORT [Suspect]
     Indication: BRONCHITIS
     Dosage: 80/4.5 UG  BID, TOTAL DAILY DOSE 320 UG
     Route: 055
     Dates: start: 20091108, end: 20091101

REACTIONS (4)
  - DYSPHONIA [None]
  - RETINAL DETACHMENT [None]
  - THROAT IRRITATION [None]
  - THROAT TIGHTNESS [None]
